FAERS Safety Report 4841170-0 (Version None)
Quarter: 2005Q4

REPORT INFORMATION
  Report Type: 
  Country: None (occurrence: None)
  Receive Date: 20051130
  Receipt Date: 20051021
  Transmission Date: 20060501
  Serious: No
  Sender: FDA-Public Use
  Company Number: US-BRISTOL-MYERS SQUIBB COMPANY-13152871

PATIENT
  Age: 22 Year
  Sex: Male

DRUGS (5)
  1. ABILIFY [Suspect]
  2. DEPAKOTE [Concomitant]
  3. WELLBUTRIN [Concomitant]
  4. PROZAC [Concomitant]
  5. SEROQUEL [Concomitant]

REACTIONS (1)
  - TARDIVE DYSKINESIA [None]
